FAERS Safety Report 8609876-5 (Version None)
Quarter: 2012Q3

REPORT INFORMATION
  Report Type: 
  Country: None (occurrence: None)
  Receive Date: 20120821
  Receipt Date: 20120813
  Transmission Date: 20120928
  Serious: Yes (Other)
  Sender: FDA-Public Use
  Company Number: US-ROCHE-1061214

PATIENT
  Sex: Male
  Weight: 79.45 kg

DRUGS (2)
  1. ACCUTANE [Suspect]
     Indication: SCAR
     Dates: start: 19920201, end: 19920901
  2. ACCUTANE [Suspect]
     Indication: ACNE CYSTIC
     Route: 065
     Dates: start: 19920201, end: 19920702

REACTIONS (6)
  - INFLAMMATORY BOWEL DISEASE [None]
  - PSEUDOPOLYP [None]
  - BLOOD CHOLESTEROL INCREASED [None]
  - COLITIS ULCERATIVE [None]
  - EMOTIONAL DISORDER [None]
  - CROHN'S DISEASE [None]
